FAERS Safety Report 22594963 (Version 2)
Quarter: 2023Q2

REPORT INFORMATION
  Report Type: Spontaneous
  Country: FR (occurrence: None)
  Receive Date: 20230613
  Receipt Date: 20230629
  Transmission Date: 20230721
  Serious: Yes (Hospitalization, Other)
  Sender: FDA-Public Use
  Company Number: 2023A132871

PATIENT
  Age: 78 Year
  Sex: Female
  Weight: 68 kg

DRUGS (18)
  1. PULMICORT TURBUHALER [Suspect]
     Active Substance: BUDESONIDE
     Indication: Chronic obstructive pulmonary disease
     Dosage: 200 UG/INHALATION, BID
     Route: 055
     Dates: start: 2015
  2. XELODA [Suspect]
     Active Substance: CAPECITABINE
     Indication: Rectal cancer
     Dosage: 825.0MG/M2 UNKNOWN
     Route: 048
     Dates: start: 2006, end: 2006
  3. POTASSIUM CHLORIDE [Suspect]
     Active Substance: POTASSIUM CHLORIDE
     Indication: Hypokalaemia
     Dosage: 2 MG
     Route: 048
     Dates: start: 201708
  4. OXALIPLATIN [Suspect]
     Active Substance: OXALIPLATIN
     Indication: Rectal cancer
     Dosage: 50 MG, UNK50.0MG UNKNOWN
     Route: 042
     Dates: start: 2006, end: 2006
  5. ALBUTEROL [Suspect]
     Active Substance: ALBUTEROL
     Indication: Asthma
     Dosage: 1 DF, PRN/ 1 INHALATION IN CASE OF SHORTNESS OF BREATH1.0DF UNKNOWN
     Route: 055
     Dates: start: 201708
  6. GLYCOPYRRONIUM\INDACATEROL [Suspect]
     Active Substance: GLYCOPYRRONIUM\INDACATEROL
     Indication: Chronic obstructive pulmonary disease
     Route: 055
  7. FLUCONAZOLE [Suspect]
     Active Substance: FLUCONAZOLE
     Indication: Fungal infection
     Dosage: 50 MOUTHWASHES
     Route: 002
     Dates: start: 201708
  8. FLUCONAZOLE [Suspect]
     Active Substance: FLUCONAZOLE
     Indication: Fungal infection
     Dosage: 50 MOUTHWASHES
     Route: 002
     Dates: start: 201708
  9. BOTULINUM TOXIN TYPE A [Suspect]
     Active Substance: BOTULINUM TOXIN TYPE A
     Indication: Anal incontinence
     Dosage: 500 UNITS, SINGLE/ 9 INJECTIONS OF 500 UNITS
     Route: 030
     Dates: start: 201201, end: 201201
  10. BUMETANIDE [Suspect]
     Active Substance: BUMETANIDE
     Indication: Hypertension
     Dosage: 5 MG, UNK
     Route: 048
     Dates: start: 201708
  11. BUMETANIDE [Suspect]
     Active Substance: BUMETANIDE
     Indication: Hypertension
     Dosage: 5 MG, UNK
     Route: 048
     Dates: start: 201708
  12. BOTULINUM TOXIN TYPE A [Suspect]
     Active Substance: BOTULINUM TOXIN TYPE A
     Dosage: 500 UNITS, SINGLE
     Route: 030
  13. THEOPHYLLINE [Suspect]
     Active Substance: THEOPHYLLINE
     Indication: Chronic obstructive pulmonary disease
     Dosage: 300 MG, BID
     Route: 048
  14. THEOPHYLLINE [Suspect]
     Active Substance: THEOPHYLLINE
     Indication: Chronic obstructive pulmonary disease
     Dosage: 2 DF (300MG)
     Route: 048
     Dates: start: 2015
  15. PREDNISONE [Suspect]
     Active Substance: PREDNISONE
     Indication: Chronic obstructive pulmonary disease
     Dosage: 12 MG, QD
     Route: 048
     Dates: start: 201708
  16. SINGULAIR [Suspect]
     Active Substance: MONTELUKAST SODIUM
     Indication: Asthma
     Dosage: 100 MG, UNK
     Route: 048
     Dates: start: 2015
  17. SINGULAIR [Suspect]
     Active Substance: MONTELUKAST SODIUM
     Indication: Asthma
     Route: 048
  18. BOTOX [Suspect]
     Active Substance: ONABOTULINUMTOXINA
     Indication: Anal incontinence
     Dosage: 500 DF, Z
     Route: 030
     Dates: start: 201201

REACTIONS (6)
  - Overdose [Unknown]
  - Arteriosclerosis coronary artery [Not Recovered/Not Resolved]
  - Ejection fraction decreased [Not Recovered/Not Resolved]
  - Dilated cardiomyopathy [Not Recovered/Not Resolved]
  - Product use in unapproved indication [Unknown]
  - Product prescribing issue [Unknown]

NARRATIVE: CASE EVENT DATE: 20170801
